FAERS Safety Report 5335805-6 (Version None)
Quarter: 2007Q2

REPORT INFORMATION
  Report Type: 
  Country: None (occurrence: None)
  Receive Date: 20070322
  Receipt Date: 20061207
  Transmission Date: 20071010
  Serious: No
  Sender: FDA-Public Use
  Company Number: US-CVT-062423

PATIENT
  Age: 73 Year
  Sex: Female
  Weight: 90.7 kg

DRUGS (8)
  1. RANEXA [Suspect]
     Indication: ANGINA PECTORIS
     Dosage: 500MG, BID; ORAL, 1000 MG, BID
     Route: 048
     Dates: start: 20060801, end: 20060820
  2. RANEXA [Suspect]
     Indication: ANGINA PECTORIS
     Dosage: 500MG, BID; ORAL, 1000 MG, BID
     Route: 048
     Dates: start: 20060821
  3. LIPITOR [Suspect]
     Dosage: 40 MG, QD
  4. DIOVAN /0139601/ VALSARTAN) [Concomitant]
  5. METFORMIN /00082701/ (METFORMIN) [Concomitant]
  6. CELEBREX [Concomitant]
  7. COUMADIN [Concomitant]
  8. COREG [Concomitant]

REACTIONS (2)
  - MYALGIA [None]
  - TREMOR [None]
